FAERS Safety Report 6028170-2 (Version None)
Quarter: 2009Q1

REPORT INFORMATION
  Report Type: 
  Country: None (occurrence: None)
  Receive Date: 20090106
  Receipt Date: 20081223
  Transmission Date: 20090719
  Serious: Yes (Disabling, Other)
  Sender: FDA-Public Use
  Company Number: CA-CELGENEUS-028-21880-08111352

PATIENT
  Sex: Female

DRUGS (20)
  1. REVLIMID [Suspect]
     Indication: DRUG USE FOR UNKNOWN INDICATION
     Route: 048
     Dates: start: 20081030, end: 20081114
  2. PREDNISONE TAB [Concomitant]
     Indication: ARTHRITIS
     Route: 065
     Dates: start: 20050208
  3. LANSOPRAZOLE [Concomitant]
     Route: 065
     Dates: start: 20050915
  4. ALFACALCIDOL [Concomitant]
     Indication: PARATHYROID DISORDER
     Route: 065
     Dates: start: 20081126
  5. CALCIUM CARBONATE [Concomitant]
     Route: 065
     Dates: start: 20070222
  6. ALLOPURINOL [Concomitant]
     Route: 065
     Dates: start: 20050408
  7. CITALOPRAM [Concomitant]
     Indication: ANTIDEPRESSANT THERAPY
     Route: 065
     Dates: start: 20060216
  8. FUROSEMIDE [Concomitant]
     Route: 065
     Dates: start: 20070223
  9. NITROGLYCERIN [Concomitant]
     Indication: ANGINA PECTORIS
     Route: 065
     Dates: start: 20041120
  10. ACETAMINOPHEN [Concomitant]
     Indication: PAIN
     Route: 065
     Dates: start: 20041120
  11. ACETAMINOPHEN [Concomitant]
  12. DIMENHYDRINATE [Concomitant]
     Indication: NAUSEA
     Route: 065
     Dates: start: 20041120
  13. DIMENHYDRINATE [Concomitant]
     Indication: VOMITING
  14. OXAZEPAM [Concomitant]
     Indication: ANXIETY
     Route: 065
     Dates: start: 20070222
  15. OXAZEPAM [Concomitant]
     Indication: INSOMNIA
  16. SENNOSIDE [Concomitant]
     Indication: CONSTIPATION
     Route: 065
     Dates: start: 20080624
  17. HYDROMORPHONE [Concomitant]
     Indication: PAIN
     Route: 065
     Dates: start: 20080624
  18. CLONAZEPAM [Concomitant]
     Indication: ANXIETY
     Route: 065
     Dates: start: 20050102
  19. CLONAZEPAM [Concomitant]
     Indication: INSOMNIA
  20. GABAPENTIN [Concomitant]
     Route: 065
     Dates: start: 20051121

REACTIONS (6)
  - BONE PAIN [None]
  - CONJUNCTIVAL HAEMORRHAGE [None]
  - CONTUSION [None]
  - HAEMATOMA [None]
  - MYALGIA [None]
  - THROMBOSIS [None]
